FAERS Safety Report 5262290-5 (Version None)
Quarter: 2007Q1

REPORT INFORMATION
  Report Type: 
  Country: None (occurrence: None)
  Receive Date: 20070308
  Receipt Date: 20070221
  Transmission Date: 20070707
  Serious: Yes (Hospitalization)
  Sender: FDA-Public Use
  Company Number: 237658

PATIENT
  Age: 40 Year
  Sex: Female

DRUGS (3)
  1. AVASTIN [Suspect]
     Indication: COLON CANCER METASTATIC
     Dosage: INTRAVENOUS
     Route: 042
     Dates: start: 20061004, end: 20070209
  2. FLUOROURACIL [Concomitant]
  3. IRINOTECAN HCL [Concomitant]

REACTIONS (1)
  - PANCREATITIS [None]
